FAERS Safety Report 7503343-8 (Version None)
Quarter: 2011Q2

REPORT INFORMATION
  Report Type: 
  Country: None (occurrence: None)
  Receive Date: 20110525
  Receipt Date: 20110516
  Transmission Date: 20111010
  Serious: Yes (Other)
  Sender: FDA-Public Use
  Company Number: CL-ASTRAZENECA-2011SE29004

PATIENT
  Age: 36 Year
  Sex: Female
  Weight: 68 kg

DRUGS (2)
  1. FASLODEX [Suspect]
     Route: 030
     Dates: start: 20110128
  2. FASLODEX [Suspect]
     Indication: BREAST CANCER
     Route: 030

REACTIONS (2)
  - METASTASES TO LIVER [None]
  - HEPATIC ENZYME INCREASED [None]
